FAERS Safety Report 5061824-3 (Version None)
Quarter: 2006Q3

REPORT INFORMATION
  Report Type: 
  Country: None (occurrence: None)
  Receive Date: 20060703
  Receipt Date: 20060131
  Transmission Date: 20061208
  Serious: No
  Sender: FDA-Public Use
  Company Number: 2006S1000957

PATIENT
  Age: 37 Year
  Sex: Female

DRUGS (6)
  1. CLOZAPINE [Suspect]
     Indication: SCHIZOPHRENIA
     Dosage: 100 MG;HS;ORAL
     Route: 048
  2. HALOPERIDOL [Concomitant]
  3. FLUOXETINE HYDROCHLORIDE [Concomitant]
  4. METHYLPHENIDATE HCL [Concomitant]
  5. BUPROPION HCL [Concomitant]
  6. METFORMIN HYDROCHLORIDE [Concomitant]

REACTIONS (2)
  - GRANULOCYTOPENIA [None]
  - LEUKOPENIA [None]
